FAERS Safety Report 21805974 (Version 1)
Quarter: 2023Q1

REPORT INFORMATION
  Report Type: Report from Study
  Country: US (occurrence: US)
  Receive Date: 20230102
  Receipt Date: 20230102
  Transmission Date: 20230418
  Serious: Yes (Other)
  Sender: FDA-Public Use
  Company Number: US-ABBVIE-4209483

PATIENT
  Sex: Female

DRUGS (1)
  1. SYNTHROID [Suspect]
     Active Substance: LEVOTHYROXINE SODIUM
     Indication: Product used for unknown indication
     Dosage: 400 MICROGRAMS
     Route: 048

REACTIONS (4)
  - Thyroid disorder [Unknown]
  - Autoimmune thyroiditis [Unknown]
  - Goitre [Unknown]
  - Pneumothorax [Unknown]
